FAERS Safety Report 8328280-0 (Version None)
Quarter: 2012Q2

REPORT INFORMATION
  Report Type: 
  Country: None (occurrence: None)
  Receive Date: 20120502
  Receipt Date: 20120424
  Transmission Date: 20120825
  Serious: Yes (Hospitalization, Other)
  Sender: FDA-Public Use
  Company Number: US-ASTELLAS-2012US002602

PATIENT
  Sex: Male
  Weight: 70 kg

DRUGS (3)
  1. PROGRAF [Suspect]
     Indication: LIVER TRANSPLANT
     Dosage: 0.5 MG, UID/QD
     Route: 048
     Dates: start: 20100910
  2. PROGRAF [Suspect]
     Dosage: 3 MG AM, 2 MG PM
     Route: 048
  3. PROGRAF [Suspect]
     Dosage: UNK
     Route: 048
     Dates: end: 20111101

REACTIONS (18)
  - URINARY TRACT INFECTION BACTERIAL [None]
  - ABDOMINAL PAIN [None]
  - PARAESTHESIA [None]
  - SKIN DISORDER [None]
  - DIABETES MELLITUS [None]
  - BIOPSY LIVER [None]
  - SEPTIC SHOCK [None]
  - CLOSTRIDIAL INFECTION [None]
  - RESPIRATORY FAILURE [None]
  - DELIRIUM [None]
  - COCCIDIOIDOMYCOSIS [None]
  - WHITE BLOOD CELL COUNT INCREASED [None]
  - PNEUMONIA [None]
  - ENTEROBACTER INFECTION [None]
  - DEEP VEIN THROMBOSIS [None]
  - RENAL FAILURE ACUTE [None]
  - HYPOTENSION [None]
  - DIARRHOEA [None]
